FAERS Safety Report 5230732-7 (Version None)
Quarter: 2007Q1

REPORT INFORMATION
  Report Type: 
  Country: None (occurrence: None)
  Receive Date: 20070206
  Receipt Date: 20070131
  Transmission Date: 20070707
  Serious: Yes (Other)
  Sender: FDA-Public Use
  Company Number: GB-GLAXOSMITHKLINE-B0359658A

PATIENT
  Sex: Female

DRUGS (9)
  1. SEROXAT [Suspect]
     Route: 065
  2. AMITRIPTYLINE HCL [Concomitant]
  3. TRIDESTRA [Concomitant]
  4. SOLPADOL [Concomitant]
  5. MELLARIL [Concomitant]
  6. ATORVASTATIN CALCIUM [Concomitant]
  7. PARACETAMOL [Concomitant]
  8. STELAZINE [Concomitant]
  9. ALCOHOL [Concomitant]

REACTIONS (11)
  - ALCOHOL PROBLEM [None]
  - ANXIETY [None]
  - COMPLETED SUICIDE [None]
  - DECREASED APPETITE [None]
  - DEPRESSED MOOD [None]
  - DRUG WITHDRAWAL SYNDROME [None]
  - HYPERHIDROSIS [None]
  - INTENTIONAL OVERDOSE [None]
  - PALPITATIONS [None]
  - SUICIDAL IDEATION [None]
  - TREMOR [None]
